FAERS Safety Report 24097897 (Version 1)
Quarter: 2024Q3

REPORT INFORMATION
  Report Type: Spontaneous
  Country: ES (occurrence: ES)
  Receive Date: 20240716
  Receipt Date: 20240716
  Transmission Date: 20241017
  Serious: Yes (Other)
  Sender: TEVA
  Company Number: None

PATIENT
  Age: 65 Year
  Sex: Male

DRUGS (4)
  1. ATORVASTATIN [Suspect]
     Active Substance: ATORVASTATIN
     Indication: Hypercholesterolaemia
     Dosage: ATORVASTATIN TEVA-RATIOPHARM, 28 TABLETS
     Route: 048
     Dates: start: 20240416, end: 20240416
  2. ENALAPRIL [Suspect]
     Active Substance: ENALAPRIL
     Indication: Hypertension
     Dosage: ENALAPRIL TEVA-RATIOPHARM, 28 TABLETS
     Route: 048
     Dates: start: 20240411
  3. ENALAPRIL [Concomitant]
     Active Substance: ENALAPRIL
     Indication: Hypertension
     Dosage: EFG TABLETS, 60 TABLETS
     Route: 048
     Dates: start: 20240322, end: 20240410
  4. ATORVASTATIN KERN PHARMA [Concomitant]
     Indication: Hypercholesterolaemia
     Dosage: EFG, 28 TABLETS
     Route: 048
     Dates: start: 20240318, end: 20240415

REACTIONS (2)
  - Lip oedema [Recovered/Resolved]
  - Angioedema [Recovered/Resolved]

NARRATIVE: CASE EVENT DATE: 20240417
